FAERS Safety Report 6373817-4 (Version None)
Quarter: 2009Q3

REPORT INFORMATION
  Report Type: 
  Country: None (occurrence: None)
  Receive Date: 20090924
  Receipt Date: 20090602
  Transmission Date: 20100115
  Serious: No
  Sender: FDA-Public Use
  Company Number: US-ASTRAZENECA-2009UW14065

PATIENT
  Age: 54 Year
  Sex: Female

DRUGS (8)
  1. SEROQUEL XR [Suspect]
     Route: 048
     Dates: start: 20090422, end: 20090401
  2. DEPAKOTE [Concomitant]
  3. FLEXERIL [Concomitant]
  4. PREMPRO [Concomitant]
  5. ATENOLOL [Concomitant]
  6. CELEBREX [Concomitant]
  7. FOSAMAX [Concomitant]
  8. FENOFIBRATE [Concomitant]

REACTIONS (2)
  - PARAESTHESIA [None]
  - RESTLESS LEGS SYNDROME [None]
